FAERS Safety Report 9349149 (Version 3)
Quarter: 2013Q3

REPORT INFORMATION
  Report Type: Spontaneous
  Country: US (occurrence: US)
  Receive Date: 20130614
  Receipt Date: 20130802
  Transmission Date: 20140515
  Serious: Yes (Other)
  Sender: FDA-Public Use
  Company Number: US-JNJFOC-20130603260

PATIENT
  Sex: Female
  Weight: 63.5 kg

DRUGS (11)
  1. XARELTO [Suspect]
     Indication: CEREBROVASCULAR ACCIDENT PROPHYLAXIS
     Route: 048
     Dates: start: 20130502
  2. XARELTO [Suspect]
     Indication: ATRIAL FIBRILLATION
     Route: 048
     Dates: start: 20130502
  3. METOPROLOL [Suspect]
     Indication: CARDIAC DISORDER
     Dosage: HALF TABLET
     Route: 065
     Dates: start: 20130418, end: 20130710
  4. METOPROLOL [Suspect]
     Indication: HEART RATE
     Dosage: HALF TABLET
     Route: 065
     Dates: start: 20130418, end: 20130710
  5. FISH OIL [Concomitant]
     Indication: DRY EYE
     Dosage: MORE THAN 3 YEARS
     Route: 065
  6. LEXAPRO [Concomitant]
     Indication: ANXIETY
     Route: 048
     Dates: start: 201305
  7. PANTOPRAZOLE [Concomitant]
     Indication: GASTROOESOPHAGEAL REFLUX DISEASE
     Dosage: MORE THAN 5 YEARS
     Route: 048
  8. ZANTAC [Concomitant]
     Indication: GASTROOESOPHAGEAL REFLUX DISEASE
     Route: 048
     Dates: start: 201306
  9. ESCITALOPRAM [Concomitant]
     Indication: ANXIETY
     Route: 065
     Dates: start: 20130415
  10. VITAMIN D [Concomitant]
     Indication: NUTRITIONAL SUPPLEMENTATION
     Dosage: 6 MONTHS
     Route: 065
  11. CALCIUM [Concomitant]
     Indication: NUTRITIONAL SUPPLEMENTATION
     Dosage: MORE THAN 5 YEARS
     Route: 065

REACTIONS (7)
  - Osteoarthritis [Not Recovered/Not Resolved]
  - Arthralgia [Not Recovered/Not Resolved]
  - Asthenia [Not Recovered/Not Resolved]
  - Pain [Not Recovered/Not Resolved]
  - Back pain [Not Recovered/Not Resolved]
  - Pain in jaw [Not Recovered/Not Resolved]
  - Local swelling [Not Recovered/Not Resolved]
